FAERS Safety Report 10337774 (Version 2)
Quarter: 2014Q4

REPORT INFORMATION
  Report Type: Spontaneous
  Country: IT (occurrence: IT)
  Receive Date: 20140724
  Receipt Date: 20141103
  Transmission Date: 20150528
  Serious: Yes (Hospitalization)
  Sender: FDA-Public Use
  Company Number: IT-BRISTOL-MYERS SQUIBB COMPANY-21212451

PATIENT
  Age: 87 Year
  Sex: Male

DRUGS (6)
  1. TAVANIC [Interacting]
     Active Substance: LEVOFLOXACIN
     Indication: INFECTION
     Route: 048
  2. CIBADREX [Concomitant]
     Active Substance: BENAZEPRIL HYDROCHLORIDE
     Dosage: 10+12.5 MG TABS
     Route: 048
  3. COUMADIN [Suspect]
     Active Substance: WARFARIN SODIUM
     Indication: ATRIAL FIBRILLATION
     Dosage: INTERRUPTED ON 09JUL14
     Route: 048
     Dates: start: 20130101, end: 20140709
  4. THEO-DUR [Concomitant]
     Active Substance: THEOPHYLLINE ANHYDROUS
     Dosage: TABS
     Route: 048
  5. SPIRIVA [Concomitant]
     Active Substance: TIOTROPIUM BROMIDE MONOHYDRATE
     Dosage: CAPS
     Route: 055
  6. SALMETEROL XINAFOATE+FLUTICASONE PROP [Concomitant]
     Dosage: 50/100 POWDER:2 UNIT
     Route: 055

REACTIONS (2)
  - Hypocoagulable state [Recovered/Resolved]
  - Drug interaction [Recovered/Resolved]

NARRATIVE: CASE EVENT DATE: 20140709
